FAERS Safety Report 6648620-8 (Version None)
Quarter: 2010Q1

REPORT INFORMATION
  Report Type: 
  Country: None (occurrence: None)
  Receive Date: 20100319
  Receipt Date: 20100303
  Transmission Date: 20100710
  Serious: Yes (Death)
  Sender: FDA-Public Use
  Company Number: DSA_42579_2010

PATIENT
  Sex: Male
  Weight: 83.9154 kg

DRUGS (12)
  1. LORAZEPAM [Suspect]
     Indication: DRUG USE FOR UNKNOWN INDICATION
     Dosage: ONCE EVERY TWO HOURS, CRUSHED AND DISSOLVED ORAL
     Route: 048
     Dates: start: 20091113, end: 20091117
  2. OXYCONTIN [Suspect]
     Indication: DRUG USE FOR UNKNOWN INDICATION
     Dosage: 40 MG, ONCE EVERY EIGHT HOURS, CRUSHED AND DISSOLVED IN WATER ORAL), (10-500 MG FREQUENCY UNSPECIFIE
     Dates: start: 20091019, end: 20091117
  3. METHADONE HCL [Suspect]
     Indication: DRUG USE FOR UNKNOWN INDICATION
     Dosage: (ONCE EVERY 12 HRS, CRUSH AND DISSOLVED IN WATER ORAL)
     Route: 048
     Dates: start: 20091016, end: 20091117
  4. OMEPRAZOLE [Concomitant]
  5. MIRTAZAPINE [Concomitant]
  6. DEXAMETHASONE [Concomitant]
  7. PROCHLORPERAZINE [Concomitant]
  8. MEGESTROL ACETATE [Concomitant]
  9. METOCLOPRAMIDE HYDROCHLORIDE [Concomitant]
  10. PREDNISOLONE ACETATE [Concomitant]
  11. METOPROLOL TARTRATE [Concomitant]
  12. CHLORPROMAZINE [Concomitant]

REACTIONS (6)
  - CRYING [None]
  - HYPERHIDROSIS [None]
  - MULTIPLE DRUG OVERDOSE [None]
  - RESPIRATORY DEPRESSION [None]
  - UNRESPONSIVE TO STIMULI [None]
  - WRONG TECHNIQUE IN DRUG USAGE PROCESS [None]
